FAERS Safety Report 8954366 (Version 1)
Quarter: 2012Q4

REPORT INFORMATION
  Report Type: Report from Study
  Country: JP (occurrence: JP)
  Receive Date: 20121210
  Receipt Date: 20121210
  Transmission Date: 20130627
  Serious: Yes (Other)
  Sender: FDA-Public Use
  Company Number: JP-009507513-1212JPN002404

PATIENT
  Age: 70 Year
  Sex: Male
  Weight: 57 kg

DRUGS (16)
  1. PEGINTRON [Suspect]
     Indication: CHRONIC HEPATITIS C
     Dosage: 1.5 Microgram/kg
     Route: 058
     Dates: start: 20120908, end: 20121003
  2. REBETOL [Suspect]
     Indication: CHRONIC HEPATITIS C
     Dosage: 600 mg, qd
     Route: 048
     Dates: start: 20120908, end: 20120920
  3. REBETOL [Suspect]
     Dosage: 400 mg, qd
     Route: 048
     Dates: start: 20120921, end: 20120926
  4. REBETOL [Suspect]
     Dosage: 200 mg, qd
     Route: 048
     Dates: start: 20120927, end: 20121011
  5. TELAVIC [Suspect]
     Indication: CHRONIC HEPATITIS C
     Dosage: 1500 mg, qd
     Route: 048
     Dates: start: 20120908, end: 20121011
  6. LIVALO [Concomitant]
     Indication: HYPERLIPIDAEMIA
     Dosage: 2 mg, qd
     Route: 048
  7. EPADEL [Concomitant]
     Indication: HYPERLIPIDAEMIA
     Dosage: 1800 mg, qd
     Route: 048
  8. FEROTYM [Concomitant]
     Indication: IRON DEFICIENCY ANAEMIA
     Dosage: 100 mg, qd
     Route: 048
  9. CLARITIN REDITABS [Concomitant]
     Dosage: 10 mg, qd
     Route: 048
  10. FLIVAS [Concomitant]
     Indication: BENIGN PROSTATIC HYPERPLASIA
     Dosage: 50 mg, qd
     Route: 048
  11. STAYBLA [Concomitant]
     Indication: BENIGN PROSTATIC HYPERPLASIA
     Dosage: 0.1 mg, qd
     Route: 048
  12. MAGNESIUM OXIDE [Concomitant]
     Indication: CONSTIPATION
     Dosage: 1.34 g, qd
     Route: 048
  13. AMLODIPINE [Concomitant]
     Indication: HYPERTENSION
     Dosage: 2.5 mg, qd
     Route: 048
  14. TANATRIL [Concomitant]
     Indication: HYPERTENSION
     Dosage: 5 mg, qd
     Route: 048
  15. NORVASC [Concomitant]
     Indication: HYPERTENSION
     Dosage: 5 mg, qd
     Route: 048
  16. DEPAS [Concomitant]
     Indication: INSOMNIA
     Dosage: 0.5 mg, qd
     Route: 048

REACTIONS (1)
  - Anaemia [Not Recovered/Not Resolved]
